FAERS Safety Report 23099184 (Version 2)
Quarter: 2023Q4

REPORT INFORMATION
  Report Type: Report from Study
  Country: US (occurrence: US)
  Receive Date: 20231024
  Receipt Date: 20231211
  Transmission Date: 20240110
  Serious: No
  Sender: FDA-Public Use
  Company Number: US-ACADIA PHARMACEUTICALS INC.-ACA-2023-PIM-004415

PATIENT
  Sex: Female

DRUGS (2)
  1. NUPLAZID [Suspect]
     Active Substance: PIMAVANSERIN TARTRATE
     Indication: Parkinson^s disease
     Dosage: 34 MILLIGRAM, QD
     Route: 048
     Dates: start: 20230927
  2. GOCOVRI [Concomitant]
     Active Substance: AMANTADINE
     Dosage: 68.5 MILLIGRAM

REACTIONS (3)
  - Condition aggravated [Unknown]
  - Nonspecific reaction [Unknown]
  - Confusional state [Unknown]
